FAERS Safety Report 6954969-1 (Version None)
Quarter: 2010Q3

REPORT INFORMATION
  Report Type: 
  Country: None (occurrence: None)
  Receive Date: 20100830
  Receipt Date: 20100819
  Transmission Date: 20110219
  Serious: Yes (Other)
  Sender: FDA-Public Use
  Company Number: DE-TYCO HEALTHCARE/MALLINCKRODT-T201001840

PATIENT
  Sex: Female

DRUGS (6)
  1. TECHNESCAN [Suspect]
     Indication: RADIOISOTOPE SCAN
     Dosage: UNK, SINGLE
     Route: 042
     Dates: start: 20100722, end: 20100722
  2. ULTRA-TECHNEKOW FM [Suspect]
     Indication: RADIOISOTOPE SCAN
     Dosage: UNK, SINGLE
     Route: 042
     Dates: start: 20100722, end: 20100722
  3. NAPROXEN [Concomitant]
     Dosage: 2 X 1
  4. PANTOZOL                           /01263202/ [Concomitant]
     Dosage: 1 X 1
  5. MIRTAZAPIN [Concomitant]
     Dosage: 1 X 1
  6. JODID                              /00044401/ [Concomitant]
     Dosage: 1 X 1

REACTIONS (4)
  - ARTHRALGIA [None]
  - INJECTION SITE PAIN [None]
  - RASH [None]
  - SYNCOPE [None]
